FAERS Safety Report 6573861-8 (Version None)
Quarter: 2010Q1

REPORT INFORMATION
  Report Type: 
  Country: None (occurrence: None)
  Receive Date: 20100204
  Receipt Date: 20100204
  Transmission Date: 20100710
  Serious: No
  Sender: FDA-Public Use
  Company Number: None

PATIENT
  Age: 76 Year
  Sex: Female
  Weight: 72.5755 kg

DRUGS (2)
  1. LEVAQUIN [Suspect]
     Indication: BRONCHITIS
     Dosage: 1 TABLET 1 PER DAY ORAL
     Route: 048
     Dates: start: 20090906, end: 20090910
  2. PREDNIZONE 50 MG. [Suspect]
     Indication: BRONCHITIS
     Dosage: 1 TABLET 1 PER DAY ORAL
     Route: 048
     Dates: start: 20090906, end: 20090910

REACTIONS (17)
  - ARTHRALGIA [None]
  - BRADYPHRENIA [None]
  - CONSTIPATION [None]
  - DIZZINESS [None]
  - ERYTHEMA [None]
  - FEELING ABNORMAL [None]
  - FUNGAL INFECTION [None]
  - HALLUCINATION [None]
  - IRRITABILITY [None]
  - MEMORY IMPAIRMENT [None]
  - MIDDLE INSOMNIA [None]
  - NO THERAPEUTIC RESPONSE [None]
  - OEDEMA PERIPHERAL [None]
  - PAIN IN EXTREMITY [None]
  - PARAESTHESIA [None]
  - SKIN WRINKLING [None]
  - TENDONITIS [None]
